FAERS Safety Report 7672965-6 (Version None)
Quarter: 2011Q3

REPORT INFORMATION
  Report Type: 
  Country: None (occurrence: None)
  Receive Date: 20110809
  Receipt Date: 20110801
  Transmission Date: 20111222
  Serious: Yes (Hospitalization, Other)
  Sender: FDA-Public Use
  Company Number: SG-ASTRAZENECA-2011SE45920

PATIENT
  Age: 63 Year
  Sex: Male

DRUGS (4)
  1. ZESTRIL [Suspect]
     Indication: HYPERTENSION
     Route: 048
  2. PHARMATON [Concomitant]
  3. VITAMIN B [Concomitant]
  4. EYEDROP [Concomitant]
     Indication: GLAUCOMA

REACTIONS (3)
  - GINGIVAL BLEEDING [None]
  - RASH [None]
  - EPISTAXIS [None]
